FAERS Safety Report 8289365-0 (Version None)
Quarter: 2012Q2

REPORT INFORMATION
  Report Type: 
  Country: None (occurrence: None)
  Receive Date: 20120417
  Receipt Date: 20120403
  Transmission Date: 20120825
  Serious: Yes (Other)
  Sender: FDA-Public Use
  Company Number: GB-RANBAXY-2012R1-55354

PATIENT

DRUGS (4)
  1. IRON [Concomitant]
     Indication: PRODUCT USED FOR UNKNOWN INDICATION
     Dosage: UNK
     Route: 048
  2. DOXYCYCLINE [Concomitant]
     Indication: LOWER RESPIRATORY TRACT INFECTION
     Dosage: UNK
     Route: 048
     Dates: start: 20120119, end: 20120126
  3. NAPROXEN [Suspect]
     Indication: ARTHRALGIA
     Dosage: UNK
     Route: 048
     Dates: start: 20120310, end: 20120310
  4. IBUPROFEN [Concomitant]
     Indication: JOINT SWELLING
     Dosage: UNK
     Route: 048

REACTIONS (5)
  - DIZZINESS [None]
  - BLISTER [None]
  - VISION BLURRED [None]
  - HEADACHE [None]
  - RASH PRURITIC [None]
